FAERS Safety Report 7280385-1 (Version None)
Quarter: 2011Q1

REPORT INFORMATION
  Report Type: 
  Country: None (occurrence: None)
  Receive Date: 20110208
  Receipt Date: 20110127
  Transmission Date: 20110831
  Serious: Yes (Other)
  Sender: FDA-Public Use
  Company Number: US-ELI_LILLY_AND_COMPANY-US201101007162

PATIENT
  Sex: Female

DRUGS (1)
  1. EVISTA [Suspect]
     Indication: OSTEOPENIA
     Dosage: 60 MG, UNK
     Dates: start: 20050101

REACTIONS (9)
  - BREAST CANCER [None]
  - PAIN [None]
  - OEDEMA PERIPHERAL [None]
  - RADIATION SKIN INJURY [None]
  - MUSCLE SPASMS [None]
  - BACK PAIN [None]
  - ECCHYMOSIS [None]
  - BLOOD CHOLESTEROL INCREASED [None]
  - JOINT SWELLING [None]
